FAERS Safety Report 8810746 (Version 2)
Quarter: 2012Q4

REPORT INFORMATION
  Report Type: 
  Country: US (occurrence: US)
  Receive Date: 20120927
  Receipt Date: 20121016
  Transmission Date: 20130627
  Serious: No
  Sender: FDA-Public Use
  Company Number: US-PFIZER INC-2012235518

PATIENT
  Sex: Male

DRUGS (2)
  1. VIAGRA [Suspect]
     Dosage: 100 mg, 1x/day (QD)
  2. CIALIS [Suspect]
     Dosage: 20 mg, UNK

REACTIONS (1)
  - Drug ineffective [Unknown]
